FAERS Safety Report 7741028-3 (Version None)
Quarter: 2011Q3

REPORT INFORMATION
  Report Type: 
  Country: None (occurrence: None)
  Receive Date: 20110909
  Receipt Date: 20110830
  Transmission Date: 20111222
  Serious: No
  Sender: FDA-Public Use
  Company Number: US-BAYER-2011-079940

PATIENT
  Age: 68 Year
  Sex: Female

DRUGS (12)
  1. ULTRAVIST 150 [Suspect]
     Indication: ANGIOGRAM
     Dosage: 100 ML, ONCE
     Dates: start: 20110830, end: 20110830
  2. ACETYLSALICYLIC ACID SRT [Concomitant]
  3. IMDUR [Concomitant]
  4. ADVAIR DISKUS 100/50 [Concomitant]
  5. CARDIZEM [Concomitant]
  6. AMBIEN [Concomitant]
  7. MULTI-VITAMIN [Concomitant]
  8. CALCIUM CARBONATE [Concomitant]
  9. MOBIC [Concomitant]
  10. SPIRIVA [Concomitant]
  11. ZOCOR [Concomitant]
  12. LASIX [Concomitant]

REACTIONS (2)
  - PRURITUS [None]
  - URTICARIA [None]
